FAERS Safety Report 4513747-3 (Version None)
Quarter: 2004Q4

REPORT INFORMATION
  Report Type: 
  Country: None (occurrence: None)
  Receive Date: 20041124
  Receipt Date: 20041110
  Transmission Date: 20050328
  Serious: Yes (Hospitalization)
  Sender: FDA-Public Use
  Company Number: 2004-UK-01091UK

PATIENT
  Age: 67 Year
  Sex: Female

DRUGS (4)
  1. SPIRIVA [Suspect]
     Indication: ASTHMA
     Dosage: 18 MCG (18 MCG) IH
     Route: 055
     Dates: start: 20040821
  2. ENALAPRIL (ENALAPRIL) [Concomitant]
  3. SIMVASTATIN [Concomitant]
  4. SALBUTAMOL (SALBUTAMOL) [Concomitant]

REACTIONS (4)
  - ERYTHEMA [None]
  - NAUSEA [None]
  - OROPHARYNGEAL SWELLING [None]
  - SWELLING FACE [None]
